FAERS Safety Report 26113433 (Version 1)
Quarter: 2025Q4

REPORT INFORMATION
  Report Type: Spontaneous
  Country: US (occurrence: None)
  Receive Date: 20251202
  Receipt Date: 20251202
  Transmission Date: 20260117
  Serious: Yes (Hospitalization)
  Sender: FDA-CTU
  Company Number: None

PATIENT
  Age: 76 Year
  Sex: Male

DRUGS (3)
  1. VYNDAMAX [Suspect]
     Active Substance: TAFAMIDIS
     Indication: Amyloidosis
     Dosage: 61MG TAKE 1 CAPSULE BY MOUTH DAILY ORAL
     Route: 048
  2. PRADAXA [Suspect]
     Active Substance: DABIGATRAN ETEXILATE MESYLATE
  3. WARFARIN [Suspect]
     Active Substance: WARFARIN

REACTIONS (4)
  - Gastrointestinal haemorrhage [None]
  - Renal failure [None]
  - Cardiac failure [None]
  - Contrast media reaction [None]
